FAERS Safety Report 9748107 (Version 2)
Quarter: 2014Q2

REPORT INFORMATION
  Report Type: Spontaneous
  Country: US (occurrence: None)
  Receive Date: 20131206
  Receipt Date: 20140530
  Transmission Date: 20141212
  Serious: Yes (Other)
  Sender: FDA-Public Use
  Company Number: 2013AP010109

PATIENT
  Age: 36 Year
  Sex: Male

DRUGS (4)
  1. BALSALAZIDE DISODIUM [Suspect]
     Indication: COLITIS ULCERATIVE
     Route: 048
  2. BALSALAZIDE DISODIUM [Suspect]
     Indication: COLITIS ULCERATIVE
     Route: 048
  3. PREDNISONE (PREDNISONE) [Concomitant]
  4. MESALAZINE (MESALAZINE) [Concomitant]

REACTIONS (5)
  - Pleuropericarditis [None]
  - Pyrexia [None]
  - Pleural effusion [None]
  - Pneumonia [None]
  - Drug hypersensitivity [None]
